FAERS Safety Report 8164270-9 (Version None)
Quarter: 2012Q1

REPORT INFORMATION
  Report Type: 
  Country: None (occurrence: None)
  Receive Date: 20120224
  Receipt Date: 20120104
  Transmission Date: 20120608
  Serious: No
  Sender: FDA-Public Use
  Company Number: US-ASTRAZENECA-2012SE00646

PATIENT
  Age: 82 Year
  Sex: Female
  Weight: 59 kg

DRUGS (2)
  1. LIPITOR [Concomitant]
     Indication: BLOOD CHOLESTEROL ABNORMAL
  2. VIMOVO [Suspect]
     Indication: ARTHRITIS
     Dosage: 375MG/20MG, 1 TABLET, BID
     Route: 048

REACTIONS (2)
  - DRUG INEFFECTIVE [None]
  - ARTHRITIS [None]
